FAERS Safety Report 23139908 (Version 1)
Quarter: 2023Q4

REPORT INFORMATION
  Report Type: Spontaneous
  Country: CA (occurrence: CA)
  Receive Date: 20231102
  Receipt Date: 20231102
  Transmission Date: 20240109
  Serious: Yes (Other)
  Sender: FDA-Public Use
  Company Number: CA-002147023-NVSC2023CA230981

PATIENT
  Age: 53 Year
  Sex: Female

DRUGS (2)
  1. DEXAMETHASONE [Suspect]
     Active Substance: DEXAMETHASONE
     Indication: Thrombocytopenia
     Dosage: 40 MG (X 4 DAYS)
     Route: 065
     Dates: start: 20230814
  2. DEXAMETHASONE [Suspect]
     Active Substance: DEXAMETHASONE
     Dosage: 40 MG (X 4 DAYS)
     Route: 065
     Dates: start: 20230914

REACTIONS (3)
  - Immune thrombocytopenia [Unknown]
  - Disease recurrence [Unknown]
  - Product use in unapproved indication [Unknown]
